FAERS Safety Report 8766225 (Version 1)
Quarter: 2012Q4

REPORT INFORMATION
  Report Type: 
  Country: US (occurrence: US)
  Receive Date: 20120904
  Receipt Date: 20120904
  Transmission Date: 20130627
  Serious: No
  Sender: FDA-Public Use
  Company Number: US-AMGEN-USASP2012052800

PATIENT
  Age: 42 Year
  Sex: Female

DRUGS (2)
  1. ENBREL [Suspect]
     Indication: ANKYLOSING SPONDYLITIS
     Dosage: 50 mg, every 10 days
     Route: 058
     Dates: start: 20100622, end: 20120806
  2. ENBREL [Suspect]
     Route: 058
     Dates: start: 20100622, end: 20120806

REACTIONS (2)
  - Ankylosing spondylitis [Not Recovered/Not Resolved]
  - Liposuction [Not Recovered/Not Resolved]
